FAERS Safety Report 24871764 (Version 1)
Quarter: 2025Q1

REPORT INFORMATION
  Report Type: Spontaneous
  Country: IT (occurrence: IT)
  Receive Date: 20250122
  Receipt Date: 20250122
  Transmission Date: 20250409
  Serious: Yes (Hospitalization, Other)
  Sender: Haleon PLC
  Company Number: IT-MINISAL02-1020313

PATIENT
  Age: 52 Year
  Sex: Male

DRUGS (4)
  1. VOLTAREN [Suspect]
     Active Substance: DICLOFENAC SODIUM
     Indication: Osteoarthritis
     Route: 048
     Dates: start: 20250101, end: 20250108
  2. ALLOPURINOL [Concomitant]
     Active Substance: ALLOPURINOL
     Indication: Product used for unknown indication
  3. NIMESULIDE [Suspect]
     Active Substance: NIMESULIDE
     Indication: Inflammation
     Dates: start: 20250101, end: 20250108
  4. ENALAPRIL [Concomitant]
     Active Substance: ENALAPRIL
     Indication: Product used for unknown indication

REACTIONS (2)
  - Drug abuse [Unknown]
  - Rectal haemorrhage [Unknown]
